FAERS Safety Report 11140587 (Version 1)
Quarter: 2015Q2

REPORT INFORMATION
  Report Type: Spontaneous
  Country: US (occurrence: US)
  Receive Date: 20150527
  Receipt Date: 20150527
  Transmission Date: 20150821
  Serious: No
  Sender: FDA-Public Use
  Company Number: US-MALLINCKRODT-QSC-2014-0786

PATIENT
  Age: 44 Year
  Sex: Female

DRUGS (2)
  1. H.P. ACTHAR [Suspect]
     Active Substance: CORTICOTROPIN
     Dosage: 80 UNITS, QD
     Dates: start: 20141017, end: 20141018
  2. H.P. ACTHAR [Suspect]
     Active Substance: CORTICOTROPIN
     Indication: MULTIPLE SCLEROSIS RELAPSE
     Dosage: 80 UNITS, QD X5DAYS
     Dates: start: 20141013, end: 20141015

REACTIONS (6)
  - Feeling hot [Recovered/Resolved]
  - Drug dose omission [Recovered/Resolved]
  - Pollakiuria [Recovered/Resolved]
  - Chills [Recovered/Resolved]
  - Drug administration error [Unknown]
  - Feeling cold [Recovered/Resolved]

NARRATIVE: CASE EVENT DATE: 20141013
